FAERS Safety Report 9347976 (Version 1)
Quarter: 2013Q2

REPORT INFORMATION
  Report Type: Spontaneous
  Country: US (occurrence: US)
  Receive Date: 20130614
  Receipt Date: 20130614
  Transmission Date: 20140414
  Serious: No
  Sender: FDA-Public Use
  Company Number: US-JNJFOC-20130600349

PATIENT
  Sex: Female

DRUGS (2)
  1. DURAGESIC [Suspect]
     Indication: NEURALGIA
     Route: 062
     Dates: start: 201302
  2. DOXYCYCLINE [Concomitant]
     Indication: LYME DISEASE
     Route: 042
     Dates: start: 2009

REACTIONS (3)
  - Drug administered at inappropriate site [Not Recovered/Not Resolved]
  - Application site rash [Not Recovered/Not Resolved]
  - Product quality issue [Unknown]
